FAERS Safety Report 8868950 (Version 1)
Quarter: 2012Q4

REPORT INFORMATION
  Report Type: Report from Study
  Country: BR (occurrence: BR)
  Receive Date: 20121027
  Receipt Date: 20121027
  Transmission Date: 20130627
  Serious: Yes (Other)
  Sender: FDA-Public Use
  Company Number: BR-US-EMD SERONO, INC.-7159261

PATIENT
  Age: 38 None
  Sex: Female

DRUGS (7)
  1. REBIF [Suspect]
     Indication: RELAPSING-REMITTING MULTIPLE SCLEROSIS
     Dates: start: 20120409, end: 20121012
  2. REBIF [Suspect]
     Dates: start: 2004, end: 2007
  3. REBIF [Suspect]
     Dates: start: 2009, end: 2010
  4. REBIF [Suspect]
     Dates: start: 2011
  5. MACRODANTINA [Concomitant]
     Indication: PRODUCT USED FOR UNKNOWN INDICATION
  6. VITAMIN B12 [Concomitant]
     Indication: PRODUCT USED FOR UNKNOWN INDICATION
  7. FERROUS SULFATE [Concomitant]
     Indication: PRODUCT USED FOR UNKNOWN INDICATION

REACTIONS (10)
  - Immunodeficiency [Recovering/Resolving]
  - Genital infection female [Recovering/Resolving]
  - Blood test abnormal [Not Recovered/Not Resolved]
  - Malaise [Not Recovered/Not Resolved]
  - Sinusitis [Recovering/Resolving]
  - Nasopharyngitis [Not Recovered/Not Resolved]
  - Influenza [Recovering/Resolving]
  - Alopecia [Not Recovered/Not Resolved]
  - Pain [Not Recovered/Not Resolved]
  - Chills [Not Recovered/Not Resolved]
